FAERS Safety Report 17794006 (Version 2)
Quarter: 2020Q2

REPORT INFORMATION
  Report Type: Report from Study
  Country: IT (occurrence: IT)
  Receive Date: 20200515
  Receipt Date: 20200521
  Transmission Date: 20200714
  Serious: Yes (Hospitalization)
  Sender: FDA-Public Use
  Company Number: IT-JNJFOC-20200507909

PATIENT
  Age: 57 Year
  Sex: Male
  Weight: 80 kg

DRUGS (11)
  1. MIDAZOLAM. [Concomitant]
     Active Substance: MIDAZOLAM
     Indication: SEDATION
  2. TAPENTADOL [Concomitant]
     Active Substance: TAPENTADOL
     Indication: ARTHRITIS ENTEROPATHIC
  3. ETORICOXIB. [Concomitant]
     Active Substance: ETORICOXIB
     Indication: ARTHRITIS ENTEROPATHIC
  4. FENTANYL. [Concomitant]
     Active Substance: FENTANYL
     Indication: SEDATION
  5. MIDAZOLAM. [Concomitant]
     Active Substance: MIDAZOLAM
     Indication: SEDATION
  6. OMEPRAZOLE. [Concomitant]
     Active Substance: OMEPRAZOLE
     Indication: GASTROOESOPHAGEAL REFLUX DISEASE
  7. CHOLECALCIFEROL [Concomitant]
     Active Substance: CHOLECALCIFEROL
     Indication: OSTEOPOROSIS PROPHYLAXIS
  8. FOLIC ACID. [Concomitant]
     Active Substance: FOLIC ACID
     Indication: ARTHRITIS ENTEROPATHIC
  9. MOVIPREP [Concomitant]
     Active Substance: ASCORBIC ACID\POLYETHYLENE GLYCOL 3350\POTASSIUM CHLORIDE\SODIUM ASCORBATE\SODIUM CHLORIDE\SODIUM SULFATE
     Indication: BOWEL PREPARATION
  10. USTEKINUMAB [Suspect]
     Active Substance: USTEKINUMAB
     Indication: CROHN^S DISEASE
     Route: 058
     Dates: start: 20181217, end: 20200121
  11. METHOTREXATE. [Concomitant]
     Active Substance: METHOTREXATE
     Indication: ARTHRITIS ENTEROPATHIC

REACTIONS (1)
  - Lung adenocarcinoma [Recovering/Resolving]

NARRATIVE: CASE EVENT DATE: 20200506
